FAERS Safety Report 21407565 (Version 2)
Quarter: 2022Q4

REPORT INFORMATION
  Report Type: Other
  Country: CH (occurrence: None)
  Receive Date: 20221004
  Receipt Date: 20221013
  Transmission Date: 20230112
  Serious: Yes (Other)
  Sender: FDA-Public Use
  Company Number: CH-ROCHE-3190318

PATIENT
  Age: 23 Year
  Sex: Male
  Weight: 79 kg

DRUGS (3)
  1. EMICIZUMAB [Suspect]
     Active Substance: EMICIZUMAB
     Indication: Haemophilia A without inhibitors
     Route: 058
     Dates: start: 20220304, end: 20220325
  2. EMICIZUMAB [Suspect]
     Active Substance: EMICIZUMAB
     Route: 058
     Dates: start: 20220401
  3. ELOCTA [Concomitant]
     Active Substance: EFMOROCTOCOG ALFA
     Indication: Factor VIII deficiency
     Route: 042
     Dates: start: 2018

REACTIONS (2)
  - Haemorrhage [Unknown]
  - Meniscus injury [Recovered/Resolved]

NARRATIVE: CASE EVENT DATE: 20220717
